FAERS Safety Report 18404860 (Version 3)
Quarter: 2021Q2

REPORT INFORMATION
  Report Type: Report from Study
  Country: US (occurrence: US)
  Receive Date: 20201020
  Receipt Date: 20210429
  Transmission Date: 20210717
  Serious: Yes (Hospitalization)
  Sender: FDA-Public Use
  Company Number: US-TAKEDA-2020TUS043699

PATIENT
  Sex: Male

DRUGS (1)
  1. PONATINIB [Suspect]
     Active Substance: PONATINIB
     Indication: GASTROINTESTINAL STROMAL TUMOUR
     Dosage: 45 MILLIGRAM, QD
     Route: 048

REACTIONS (9)
  - Erythema [Unknown]
  - Off label use [Unknown]
  - Product administration error [Unknown]
  - Pain [Unknown]
  - Sensitive skin [Unknown]
  - Dermatitis infected [Unknown]
  - Dry skin [Unknown]
  - Arthralgia [Unknown]
  - Product dose omission issue [Unknown]
